FAERS Safety Report 5304469-X (Version None)
Quarter: 2007Q2

REPORT INFORMATION
  Report Type: 
  Country: None (occurrence: None)
  Receive Date: 20070419
  Receipt Date: 20070419
  Transmission Date: 20071010
  Serious: Yes (Hospitalization)
  Sender: FDA-Public Use
  Company Number: None

PATIENT
  Sex: Male
  Weight: 87.5 kg

DRUGS (2)
  1. LEUKINE [Suspect]
     Indication: PROSTATE CANCER
     Dosage: 250MG/M2   DAYS1-14   INJECTION
     Dates: start: 20061127
  2. STEROIDS [Concomitant]

REACTIONS (3)
  - FALL [None]
  - LIMB INJURY [None]
  - THROMBOSIS [None]
